FAERS Safety Report 6117257-1 (Version None)
Quarter: 2009Q1

REPORT INFORMATION
  Report Type: 
  Country: None (occurrence: None)
  Receive Date: 20090314
  Receipt Date: 20090114
  Transmission Date: 20090719
  Serious: No
  Sender: FDA-Public Use
  Company Number: US-ABBOTT-09P-163-0497135-00

PATIENT
  Sex: Female

DRUGS (4)
  1. HUMIRA [Suspect]
     Indication: CROHN'S DISEASE
     Dosage: 80MG DAY 1, AND 40MG EOW
     Route: 058
     Dates: start: 20090108
  2. 6 MERCAPTOPURINE (6MP) [Concomitant]
     Indication: CROHN'S DISEASE
  3. SULFASALAZINE [Concomitant]
     Indication: CROHN'S DISEASE
  4. BIRTH CONTROL PILLS [Concomitant]
     Indication: DRUG USE FOR UNKNOWN INDICATION

REACTIONS (5)
  - MUSCLE SPASMS [None]
  - MUSCULOSKELETAL PAIN [None]
  - MYOSITIS [None]
  - NECK PAIN [None]
  - PAIN IN EXTREMITY [None]
